FAERS Safety Report 8398161-5 (Version None)
Quarter: 2012Q2

REPORT INFORMATION
  Report Type: 
  Country: None (occurrence: None)
  Receive Date: 20120531
  Receipt Date: 20120518
  Transmission Date: 20120825
  Serious: No
  Sender: FDA-Public Use
  Company Number: US-ASTRAZENECA-2011SE26972

PATIENT
  Age: 55 Year
  Sex: Female
  Weight: 118.4 kg

DRUGS (14)
  1. METOPROLOL TARTRATE [Concomitant]
     Indication: BLOOD PRESSURE ABNORMAL
  2. LEURICA [Concomitant]
     Indication: FIBROMYALGIA
  3. HYDROCHLOROTHIAZIDE [Concomitant]
     Indication: BLOOD PRESSURE ABNORMAL
  4. SEROQUEL [Suspect]
     Indication: ANXIETY
     Route: 048
  5. SEROQUEL [Suspect]
     Route: 048
  6. ASPIRIN [Concomitant]
     Indication: ANTICOAGULANT THERAPY
  7. SEROQUEL [Suspect]
     Route: 048
  8. COGENTIN [Concomitant]
     Indication: NONSPECIFIC REACTION
     Dosage: DAILY
  9. LOVASTATIN [Concomitant]
     Indication: BLOOD CHOLESTEROL ABNORMAL
  10. SEROQUEL [Suspect]
     Indication: MENTAL DISORDER
     Route: 048
  11. SEROQUEL [Suspect]
     Indication: DEPRESSION
     Route: 048
  12. SEROQUEL [Suspect]
     Route: 048
  13. GEODON [Concomitant]
  14. CELEXA [Concomitant]
     Indication: DEPRESSION

REACTIONS (6)
  - WRONG DRUG ADMINISTERED [None]
  - ADVERSE EVENT [None]
  - DRUG DOSE OMISSION [None]
  - MANIA [None]
  - DRUG WITHDRAWAL SYNDROME [None]
  - AGITATION [None]
